FAERS Safety Report 17089865 (Version 1)
Quarter: 2019Q4

REPORT INFORMATION
  Report Type: Other
  Country: GB (occurrence: GB)
  Receive Date: 20191128
  Receipt Date: 20191128
  Transmission Date: 20200122
  Serious: Yes (Other)
  Sender: FDA-Public Use
  Company Number: GB-ASTELLAS-2019US047195

PATIENT
  Age: 69 Year
  Sex: Male

DRUGS (8)
  1. REGADENOSON [Suspect]
     Active Substance: REGADENOSON
     Indication: DIAGNOSTIC PROCEDURE
     Dosage: 400 ?G, SINGLE
     Route: 040
     Dates: start: 20191017, end: 20191017
  2. REGADENOSON [Suspect]
     Active Substance: REGADENOSON
     Indication: DIAGNOSTIC PROCEDURE
     Dosage: 400 ?G, SINGLE
     Route: 040
     Dates: start: 20191017, end: 20191017
  3. REGADENOSON [Suspect]
     Active Substance: REGADENOSON
     Indication: HYPERAEMIA
  4. REGADENOSON [Suspect]
     Active Substance: REGADENOSON
     Indication: DIAGNOSTIC PROCEDURE
     Dosage: 400 ?G, SINGLE
     Route: 040
     Dates: start: 20191017, end: 20191017
  5. REGADENOSON [Suspect]
     Active Substance: REGADENOSON
     Indication: DIAGNOSTIC PROCEDURE
     Dosage: 400 ?G, SINGLE
     Route: 040
     Dates: start: 20191017, end: 20191017
  6. REGADENOSON [Suspect]
     Active Substance: REGADENOSON
     Indication: HYPERAEMIA
  7. REGADENOSON [Suspect]
     Active Substance: REGADENOSON
     Indication: HYPERAEMIA
  8. REGADENOSON [Suspect]
     Active Substance: REGADENOSON
     Indication: HYPERAEMIA

REACTIONS (2)
  - Vitreous detachment [Not Recovered/Not Resolved]
  - Visual impairment [Unknown]

NARRATIVE: CASE EVENT DATE: 20191017
